FAERS Safety Report 8124352-4 (Version None)
Quarter: 2012Q1

REPORT INFORMATION
  Report Type: 
  Country: None (occurrence: None)
  Receive Date: 20120209
  Receipt Date: 20120131
  Transmission Date: 20120608
  Serious: Yes (Other)
  Sender: FDA-Public Use
  Company Number: IE-ELI_LILLY_AND_COMPANY-IE201112002570

PATIENT
  Age: 47 Year
  Sex: Female
  Weight: 51 kg

DRUGS (10)
  1. AMITRIPTYLINE HCL [Concomitant]
     Dosage: 50 MG, EACH EVENING
     Dates: start: 20110501
  2. GABAPENTIN [Concomitant]
     Indication: RAYNAUD'S PHENOMENON
     Dosage: UNK
     Dates: start: 20071001
  3. PHENOBARBITAL TAB [Concomitant]
     Dosage: UNK, PRN
  4. DICLOFENAC SODIUM [Concomitant]
     Dosage: 75 MG, UNK
     Dates: start: 20070101
  5. VALERIANA OFFICINALIS [Concomitant]
     Dosage: 25 GTT, QD
  6. AMITRIPTYLINE HCL [Concomitant]
     Indication: ANXIETY
     Dosage: 25 MG, UNK
     Dates: start: 20110401, end: 20110501
  7. XANAX [Concomitant]
     Indication: ANXIETY
     Dosage: 1 MG, UNK
     Dates: start: 20110101, end: 20110901
  8. CYMBALTA [Suspect]
     Dosage: 60 MG, QD
     Dates: end: 20111111
  9. CYMBALTA [Suspect]
     Indication: NEURALGIA
     Dosage: 30 MG, QD
     Dates: start: 20110901
  10. PARALIEF [Concomitant]
     Indication: NEURALGIA
     Dosage: 500 MG, UNK
     Dates: start: 20071001

REACTIONS (4)
  - ELECTROCARDIOGRAM QT PROLONGED [None]
  - PALPITATIONS [None]
  - BLOOD POTASSIUM DECREASED [None]
  - BLOOD MAGNESIUM DECREASED [None]
